FAERS Safety Report 9380376 (Version 1)
Quarter: 2013Q3

REPORT INFORMATION
  Report Type: Spontaneous
  Country: IT (occurrence: IT)
  Receive Date: 20130702
  Receipt Date: 20130702
  Transmission Date: 20140515
  Serious: Yes (Hospitalization)
  Sender: FDA-Public Use
  Company Number: IT-TEVA-384200ISR

PATIENT
  Age: 64 Year
  Sex: Male

DRUGS (8)
  1. TEVAGRASTIM [Suspect]
     Indication: FEBRILE NEUTROPENIA
     Route: 058
     Dates: start: 20121116, end: 20121120
  2. ARANESP [Suspect]
     Indication: FEBRILE NEUTROPENIA
     Route: 058
     Dates: start: 20121116, end: 20121117
  3. ROCEFIN [Suspect]
     Indication: FEBRILE NEUTROPENIA
     Dosage: 1 GRAM DAILY;
     Route: 042
     Dates: start: 20121116, end: 20121122
  4. CISPLATIN [Concomitant]
  5. PANTOPRAZOLE [Concomitant]
  6. VEPESID [Concomitant]
  7. EMEND [Concomitant]
  8. DELTACORTENE [Concomitant]

REACTIONS (1)
  - Autoimmune haemolytic anaemia [Unknown]
